FAERS Safety Report 9753114 (Version 2)
Quarter: 2015Q3

REPORT INFORMATION
  Report Type: Spontaneous
  Country: US (occurrence: US)
  Receive Date: 20131213
  Receipt Date: 20150805
  Transmission Date: 20151125
  Serious: No
  Sender: FDA-Public Use
  Company Number: US-GILEAD-2010-0026924

PATIENT
  Age: 45 Year
  Sex: Male
  Weight: 67.13 kg

DRUGS (10)
  1. LETAIRIS [Suspect]
     Active Substance: AMBRISENTAN
     Indication: PULMONARY ARTERIAL HYPERTENSION
     Route: 048
     Dates: start: 20090601, end: 20100116
  2. COUMADIN [Concomitant]
     Active Substance: WARFARIN SODIUM
  3. ADVAIR DISKUS [Concomitant]
     Active Substance: FLUTICASONE PROPIONATE\SALMETEROL XINAFOATE
  4. GABAPENTIN. [Concomitant]
     Active Substance: GABAPENTIN
  5. ALLOPURINOL. [Suspect]
     Active Substance: ALLOPURINOL
  6. FLOLAN [Suspect]
     Active Substance: EPOPROSTENOL SODIUM
  7. PROTONIX [Concomitant]
     Active Substance: PANTOPRAZOLE SODIUM
  8. REVATIO [Suspect]
     Active Substance: SILDENAFIL CITRATE
     Indication: PULMONARY ARTERIAL HYPERTENSION
     Dates: start: 20090929, end: 20100116
  9. LASIX [Concomitant]
     Active Substance: FUROSEMIDE
  10. ASTELIN NASA [Concomitant]

REACTIONS (2)
  - Urticaria [Recovering/Resolving]
  - Oral mucosal blistering [Recovering/Resolving]

NARRATIVE: CASE EVENT DATE: 20091221
